FAERS Safety Report 22680006 (Version 2)
Quarter: 2024Q2

REPORT INFORMATION
  Report Type: Report from Study
  Country: CZ (occurrence: CZ)
  Receive Date: 20230707
  Receipt Date: 20240604
  Transmission Date: 20240716
  Serious: Yes (Other)
  Sender: FDA-Public Use
  Company Number: CZ-UCBSA-2022070563

PATIENT
  Age: 45 Year
  Sex: Female

DRUGS (1)
  1. CERTOLIZUMAB PEGOL [Suspect]
     Active Substance: CERTOLIZUMAB PEGOL
     Indication: Rheumatoid arthritis
     Dosage: 200 MILLIGRAM, EV 2 WEEKS(QOW)
     Route: 058
     Dates: start: 20220628, end: 20230301

REACTIONS (3)
  - Lyme disease [Recovered/Resolved]
  - Urinary tract infection [Recovered/Resolved]
  - Protein urine [Recovered/Resolved]

NARRATIVE: CASE EVENT DATE: 20221010
